FAERS Safety Report 4304412-6 (Version None)
Quarter: 2004Q1

REPORT INFORMATION
  Report Type: 
  Country: None (occurrence: None)
  Receive Date: 20040224
  Receipt Date: 20040209
  Transmission Date: 20041129
  Serious: Yes (Death)
  Sender: FDA-Public Use
  Company Number: US-JNJFOC-20040202384

PATIENT
  Age: 90 Year
  Sex: Female

DRUGS (7)
  1. DITROPAN XL [Suspect]
     Indication: POLLAKIURIA
     Dosage: 5 MG, ORAL
     Route: 048
  2. POTASSIUM (POTASSIUM) [Concomitant]
  3. TIAZAR (DILTIAZEM HYDROCHLORIDE) [Concomitant]
  4. PAXIL [Concomitant]
  5. MACRODANTIN [Concomitant]
  6. ACIPHEX [Concomitant]
  7. RISTERAL (TEMAZEPAM) [Concomitant]

REACTIONS (1)
  - DEATH [None]
